FAERS Safety Report 4523960-7 (Version None)
Quarter: 2004Q4

REPORT INFORMATION
  Report Type: 
  Country: None (occurrence: None)
  Receive Date: 20041209
  Receipt Date: 20041203
  Transmission Date: 20050328
  Serious: Yes (Other)
  Sender: FDA-Public Use
  Company Number: GBWYE124519OCT04

PATIENT
  Age: 40 Year
  Sex: Male

DRUGS (2)
  1. EFFEXOR [Suspect]
     Indication: DEPRESSION
     Dosage: 37.5 MG 2X PER 1 DAY ORAL
     Route: 048
     Dates: start: 20040117, end: 20040123
  2. CITALOPRAM HYDROBROMIDE [Suspect]
     Indication: DEPRESSION
     Dosage: 20 MG 1X PER 1 DAY ORAL
     Route: 048
     Dates: start: 20031209, end: 20040117

REACTIONS (10)
  - CHRONIC FATIGUE SYNDROME [None]
  - DRUG WITHDRAWAL SYNDROME [None]
  - FAMILY STRESS [None]
  - HEADACHE [None]
  - HYPERHIDROSIS [None]
  - MYOCLONUS [None]
  - PRURITUS [None]
  - SEROTONIN SYNDROME [None]
  - SUICIDAL IDEATION [None]
  - TINNITUS [None]
